FAERS Safety Report 10381189 (Version 2)
Quarter: 2014Q3

REPORT INFORMATION
  Report Type: Spontaneous
  Country: CA (occurrence: CA)
  Receive Date: 20140813
  Receipt Date: 20140813
  Transmission Date: 20150326
  Serious: Yes (Other)
  Sender: FDA-Public Use
  Company Number: CA-TARO PHARMACEUTICALS U.S.A., INC-2014SUN01769

PATIENT
  Age: 81 Year
  Sex: Female
  Weight: 82.54 kg

DRUGS (10)
  1. METOPROLOL [Concomitant]
     Active Substance: METOPROLOL
     Dosage: 75 MG, BID
     Dates: start: 20140714
  2. LIPITOR [Concomitant]
     Active Substance: ATORVASTATIN CALCIUM
     Dosage: 40 MG, QD
     Dates: start: 20140616
  3. ASA [Concomitant]
     Active Substance: ASPIRIN
     Dosage: 81 MG, OD
  4. PANTOLOC [Concomitant]
     Active Substance: PANTOPRAZOLE SODIUM
     Dosage: 40 MG, QD (FOR ONE MONTH)
     Dates: start: 20140616
  5. HYDROCHLOROTHIAZIDE. [Concomitant]
     Active Substance: HYDROCHLOROTHIAZIDE
     Dosage: 12.5 MG, QD
     Dates: start: 20140430, end: 20140714
  6. NITRODERM [Concomitant]
     Active Substance: NITROGLYCERIN
     Dosage: 1 PATCH FOR 12 HOURS
     Dates: start: 20140515
  7. TARO-WARFARIN TABLETS 4MG [Suspect]
     Active Substance: WARFARIN
     Indication: ATRIAL FIBRILLATION
     Dosage: 6 MG, QD
     Route: 048
     Dates: start: 20140714, end: 20140725
  8. TARO-WARFARIN TABLETS 4MG [Suspect]
     Active Substance: WARFARIN
     Indication: HEART VALVE REPLACEMENT
  9. BISOPROLOL [Concomitant]
     Active Substance: BISOPROLOL
     Dosage: 2.5 MG, QD
     Dates: start: 20140430
  10. PANTOLOC [Concomitant]
     Active Substance: PANTOPRAZOLE SODIUM
     Dosage: 40 MG, QD (FOR ONE MONTH)
     Dates: start: 201309

REACTIONS (3)
  - Product quality issue [None]
  - Product substitution issue [Recovered/Resolved]
  - International normalised ratio decreased [Recovered/Resolved]

NARRATIVE: CASE EVENT DATE: 20140717
